FAERS Safety Report 8175225-2 (Version None)
Quarter: 2012Q1

REPORT INFORMATION
  Report Type: 
  Country: None (occurrence: None)
  Receive Date: 20120227
  Receipt Date: 20120214
  Transmission Date: 20120608
  Serious: Yes (Other)
  Sender: FDA-Public Use
  Company Number: AUR-APL-2012-01071

PATIENT
  Age: 34 Year
  Sex: Male

DRUGS (3)
  1. CEFTAZIDIME [Suspect]
     Indication: PRODUCT USED FOR UNKNOWN INDICATION
     Dosage: 1 GM (1 GM, 1 IN 1 D) INTRAPERITONEAL
     Route: 033
  2. DEXTRIN (DEXTRIN) [Suspect]
     Indication: PRODUCT USED FOR UNKNOWN INDICATION
     Dates: start: 20070101
  3. VANCOMYCIN [Suspect]
     Indication: PRODUCT USED FOR UNKNOWN INDICATION
     Dosage: 2 GM, 5 D, INTRAPERITONEAL
     Route: 033

REACTIONS (2)
  - CHEMICAL PERITONITIS [None]
  - HAEMODIALYSIS [None]
